FAERS Safety Report 9458664 (Version 2)
Quarter: 2013Q3

REPORT INFORMATION
  Report Type: Spontaneous
  Country: US (occurrence: None)
  Receive Date: 20130812
  Receipt Date: 20130826
  Transmission Date: 20140515
  Serious: Yes (Other)
  Sender: FDA-Public Use
  Company Number: AUR-APL-2013-06564

PATIENT
  Age: 73 Year
  Sex: Male
  Weight: 107.5 kg

DRUGS (3)
  1. AMOXICILLIN + CLAVULANIC ACID [Suspect]
     Indication: CYSTITIS
     Dosage: 3 DOSAGE FORMS (1 DOSAGE FORMS 3 IN 1 D) ORAL
     Route: 048
     Dates: start: 20130729
  2. METFORMIN (METFORMIN) [Concomitant]
  3. INSULIN (INSULIN) [Concomitant]

REACTIONS (1)
  - Blood glucose increased [None]
